FAERS Safety Report 8240000 (Version 4)
Quarter: 2023Q1

REPORT INFORMATION
  Report Type: Spontaneous
  Country: GB (occurrence: GB)
  Receive Date: 20111110
  Receipt Date: 20230323
  Transmission Date: 20230418
  Serious: Yes (Disabling, Other)
  Sender: FDA-Public Use
  Company Number: GB-BAYER-2011-107385

PATIENT
  Age: 57 Year
  Sex: Male

DRUGS (2)
  1. CIPROFLOXACIN [Suspect]
     Active Substance: CIPROFLOXACIN
     Indication: Post procedural infection
     Dosage: 500 MG, BID
     Dates: start: 20101215, end: 2011
  2. CIPROFLOXACIN [Suspect]
     Active Substance: CIPROFLOXACIN
     Indication: Biopsy prostate
     Dosage: UNK
     Dates: start: 201009, end: 2010

REACTIONS (49)
  - Fibromyalgia [Not Recovered/Not Resolved]
  - Intraocular pressure increased [None]
  - Suicidal ideation [None]
  - Foreign body in throat [None]
  - Prostatic pain [Not Recovered/Not Resolved]
  - Pain [None]
  - Myalgia [None]
  - Pain [None]
  - Arthralgia [None]
  - Tremor [None]
  - Depression [None]
  - Cognitive disorder [None]
  - Arthralgia [None]
  - Burning sensation [None]
  - Paraesthesia [None]
  - Skin disorder [None]
  - Palmar erythema [None]
  - Urine abnormality [None]
  - Restlessness [None]
  - Fatigue [None]
  - Muscle atrophy [None]
  - Asthenia [None]
  - Apathy [None]
  - Psychiatric symptom [None]
  - Insomnia [None]
  - Irritability [None]
  - Tearfulness [None]
  - Hypoaesthesia [None]
  - Electric shock sensation [None]
  - Disturbance in attention [None]
  - Feeling abnormal [None]
  - Stress [None]
  - Headache [None]
  - Headache [None]
  - Tinnitus [None]
  - Personality change [None]
  - Disturbance in social behaviour [None]
  - Confusional state [None]
  - Malaise [None]
  - Pain in extremity [None]
  - Tendonitis [None]
  - Neuralgia [None]
  - Abdominal pain upper [None]
  - Arthralgia [None]
  - Formication [None]
  - Neck pain [None]
  - Sleep deficit [None]
  - Anxiety [Not Recovered/Not Resolved]
  - Energy increased [Not Recovered/Not Resolved]

NARRATIVE: CASE EVENT DATE: 20110101
